FAERS Safety Report 5148139-X (Version None)
Quarter: 2006Q4

REPORT INFORMATION
  Report Type: 
  Country: None (occurrence: None)
  Receive Date: 20061106
  Receipt Date: 20061026
  Transmission Date: 20070319
  Serious: Yes (Life-Threatening, Hospitalization)
  Sender: FDA-Public Use
  Company Number: 2006SP004633

PATIENT
  Age: 25 Year
  Sex: Male
  Weight: 65 kg

DRUGS (5)
  1. NOXAFIL [Suspect]
     Indication: PNEUMONIA FUNGAL
     Dosage: 400 MG; BID; PO
     Route: 048
     Dates: start: 20060906, end: 20061012
  2. GLEEVEC [Suspect]
     Indication: ACUTE MYELOID LEUKAEMIA
     Dosage: 600 MG; QD;
     Dates: start: 20060703, end: 20061012
  3. CIPROBAY [Concomitant]
  4. PANTOZOL [Concomitant]
  5. ACETAMINOPHEN [Concomitant]

REACTIONS (2)
  - HEADACHE [None]
  - SUBDURAL HAEMORRHAGE [None]
